FAERS Safety Report 24053497 (Version 4)
Quarter: 2024Q3

REPORT INFORMATION
  Report Type: Spontaneous
  Country: BR (occurrence: BR)
  Receive Date: 20240705
  Receipt Date: 20240805
  Transmission Date: 20241016
  Serious: Yes (Other)
  Sender: BOEHRINGER INGELHEIM
  Company Number: BR-BoehringerIngelheim-2024-BI-037356

PATIENT
  Age: 25 Year
  Sex: Female
  Weight: 68 kg

DRUGS (7)
  1. BEROTEC [Suspect]
     Active Substance: FENOTEROL HYDROBROMIDE
     Indication: Asthma
     Dosage: 1 PUFF A DAY USUALLY IN THE MORNING
     Route: 048
     Dates: start: 20240627
  2. BEROTEC [Suspect]
     Active Substance: FENOTEROL HYDROBROMIDE
     Indication: Bronchitis
     Dosage: 10 PUFF A DAY.
     Dates: start: 20240629, end: 20240704
  3. ATROVENT [Suspect]
     Active Substance: IPRATROPIUM BROMIDE
     Indication: Bronchitis
     Dosage: DROPS. SOLUTION FOR NEBULIZATION.
     Route: 055
     Dates: start: 201003, end: 2016
  4. TRAMADOL [Concomitant]
     Active Substance: TRAMADOL\TRAMADOL HYDROCHLORIDE
     Indication: Product used for unknown indication
     Dosage: ON BUSY DAYS
     Route: 048
  5. TRAMADOL [Concomitant]
     Active Substance: TRAMADOL\TRAMADOL HYDROCHLORIDE
     Route: 048
  6. DIPYRONE [Concomitant]
     Active Substance: DIPYRONE
     Indication: Product used for unknown indication
     Route: 048
  7. DIPYRONE [Concomitant]
     Active Substance: DIPYRONE
     Dosage: ON BUSY DAYS
     Route: 048

REACTIONS (6)
  - Asthmatic crisis [Recovered/Resolved]
  - Drug ineffective [Recovered/Resolved]
  - Overdose [Recovered/Resolved]
  - Product delivery mechanism issue [Recovered/Resolved]
  - Tachycardia [Unknown]
  - Tremor [Unknown]

NARRATIVE: CASE EVENT DATE: 20100101
